FAERS Safety Report 4272850-6 (Version None)
Quarter: 2004Q1

REPORT INFORMATION
  Report Type: 
  Country: None (occurrence: None)
  Receive Date: 20040114
  Receipt Date: 20040105
  Transmission Date: 20041129
  Serious: No
  Sender: FDA-Public Use
  Company Number: 04P-163-0246392-00

PATIENT
  Age: 42 Year
  Sex: Male

DRUGS (4)
  1. KALETRA [Suspect]
     Indication: HIV INFECTION
     Dosage: 3 CAPSULE, 2 IN 1 D
  2. TACROLIMUS (TACROLIMUS) [Suspect]
     Dosage: 4 MG, 2 IN 1 D, PER ORAL; SEE IMAGE
     Route: 048
  3. METHYLPREDNISONE [Concomitant]
  4. NELFINAVIR [Concomitant]

REACTIONS (6)
  - DISEASE RECURRENCE [None]
  - DRUG INTERACTION [None]
  - DRUG LEVEL INCREASED [None]
  - DRUG TOXICITY [None]
  - HEADACHE [None]
  - HEPATITIS C [None]
